FAERS Safety Report 7151655-2 (Version None)
Quarter: 2010Q4

REPORT INFORMATION
  Report Type: 
  Country: None (occurrence: None)
  Receive Date: 20101123
  Receipt Date: 20100726
  Transmission Date: 20110411
  Serious: No
  Sender: FDA-Public Use
  Company Number: 008478

PATIENT
  Sex: Female
  Weight: 56.6 kg

DRUGS (1)
  1. CIMZIA [Suspect]
     Indication: CROHN'S DISEASE
     Dosage: (SUBCUTANEOUS)
     Route: 058
     Dates: start: 20091113

REACTIONS (6)
  - ABDOMINAL PAIN [None]
  - DYSPNOEA [None]
  - FAECES DISCOLOURED [None]
  - FATIGUE [None]
  - FREQUENT BOWEL MOVEMENTS [None]
  - HAEMATOCHEZIA [None]
